FAERS Safety Report 14398697 (Version 2)
Quarter: 2018Q1

REPORT INFORMATION
  Report Type: Spontaneous
  Country: US (occurrence: US)
  Receive Date: 20180117
  Receipt Date: 20180312
  Transmission Date: 20180509
  Serious: Yes (Other)
  Sender: FDA-Public Use
  Company Number: US-SUN PHARMACEUTICAL INDUSTRIES LTD-2018US-159932

PATIENT
  Age: 24 Month
  Sex: Female

DRUGS (4)
  1. ISOTRETINOIN. [Suspect]
     Active Substance: ISOTRETINOIN
     Indication: IMMUNOSUPPRESSANT DRUG THERAPY
     Dosage: 2 CYCLES
     Route: 065
  2. DINUTUXIMAB [Suspect]
     Active Substance: DINUTUXIMAB
     Indication: ADRENAL GLAND CANCER
     Dosage: 2 CYCLES
     Route: 065
  3. INTERLEUKIN 2 (IL-2) [Suspect]
     Active Substance: ALDESLEUKIN
     Indication: IMMUNOSUPPRESSANT DRUG THERAPY
     Dosage: 2 CYCLES
     Route: 065
  4. GRANULOCYTE MACROPHAGE COLONY STIMULATING FACTOR (GMCSF) [Suspect]
     Active Substance: GRANULOCYTE-MACROPHAGE COLONY-STIMULATING FACTOR
     Indication: IMMUNOSUPPRESSANT DRUG THERAPY
     Dosage: 2 CYCLES
     Route: 065

REACTIONS (7)
  - Hypotonia [Recovering/Resolving]
  - Irritability [Recovering/Resolving]
  - Dysuria [Recovering/Resolving]
  - Muscular weakness [Recovering/Resolving]
  - Anal incontinence [Recovering/Resolving]
  - Urinary incontinence [Recovering/Resolving]
  - Myelitis transverse [Recovering/Resolving]
